FAERS Safety Report 12638287 (Version 1)
Quarter: 2016Q3

REPORT INFORMATION
  Report Type: Spontaneous
  Country: US (occurrence: US)
  Receive Date: 20160809
  Receipt Date: 20160809
  Transmission Date: 20161109
  Serious: No
  Sender: FDA-Public Use
  Company Number: US-SA-2016SA089852

PATIENT
  Age: 74 Year
  Sex: Male
  Weight: 81.64 kg

DRUGS (2)
  1. PRALUENT [Suspect]
     Active Substance: ALIROCUMAB
     Indication: TYPE V HYPERLIPIDAEMIA
     Route: 058
     Dates: start: 20160222, end: 20160502
  2. ALIROCUMAB PREFILLED PEN [Concomitant]
     Active Substance: ALIROCUMAB
     Indication: TYPE V HYPERLIPIDAEMIA
     Dates: start: 20160407

REACTIONS (2)
  - Arthralgia [Not Recovered/Not Resolved]
  - Back pain [Not Recovered/Not Resolved]

NARRATIVE: CASE EVENT DATE: 20160302
